FAERS Safety Report 4830974-6 (Version None)
Quarter: 2005Q4

REPORT INFORMATION
  Report Type: 
  Country: None (occurrence: None)
  Receive Date: 20051114
  Receipt Date: 20051106
  Transmission Date: 20060501
  Serious: No
  Sender: FDA-Public Use
  Company Number: 2005-134390-NL

PATIENT
  Age: 35 Year
  Sex: Female

DRUGS (3)
  1. MIRTAZAPINE [Suspect]
     Dosage: 15 MG/30 MG/45 MG ORAL
     Route: 048
     Dates: start: 20051018, end: 20051018
  2. MIRTAZAPINE [Suspect]
     Dosage: 15 MG/30 MG/45 MG ORAL
     Route: 048
     Dates: start: 20051019, end: 20051019
  3. MIRTAZAPINE [Suspect]
     Dosage: 15 MG/30 MG/45 MG ORAL
     Route: 048
     Dates: start: 20051020, end: 20051107

REACTIONS (7)
  - BLOOD PRESSURE DIASTOLIC INCREASED [None]
  - BLOOD PRESSURE SYSTOLIC DECREASED [None]
  - FEELING DRUNK [None]
  - PALPITATIONS [None]
  - SOMNOLENCE [None]
  - TACHYCARDIA [None]
  - WEIGHT INCREASED [None]
